FAERS Safety Report 20902589 (Version 3)
Quarter: 2022Q2

REPORT INFORMATION
  Report Type: Report from Study
  Country: KR (occurrence: KR)
  Receive Date: 20220601
  Receipt Date: 20220620
  Transmission Date: 20220721
  Serious: Yes (Death, Hospitalization, Other)
  Sender: FDA-Public Use
  Company Number: KR-TAKEDA-2022TUS035650

PATIENT
  Age: 79 Year
  Sex: Male
  Weight: 81 kg

DRUGS (9)
  1. BRIGATINIB [Suspect]
     Active Substance: BRIGATINIB
     Indication: Non-small cell lung cancer
     Dosage: 90 MILLIGRAM, QD
     Route: 048
     Dates: start: 20220523, end: 20220526
  2. DOXOFYLLINE [Concomitant]
     Active Substance: DOXOFYLLINE
     Indication: Prophylaxis
     Dosage: UNK, QD
     Route: 048
     Dates: start: 20210802, end: 20220526
  3. MAYOGEL [Concomitant]
     Indication: Prophylaxis
     Dosage: 500 MILLIGRAM, QD
     Route: 048
     Dates: start: 20220110, end: 20220526
  4. NORZYME [Concomitant]
     Indication: Prophylaxis
     Dosage: UNK UNK, QD
     Route: 048
     Dates: start: 20210802, end: 20220526
  5. Esoduo [Concomitant]
     Indication: Prophylaxis
     Dosage: UNK UNK, QD
     Route: 048
     Dates: start: 20220425, end: 20220526
  6. DIGOXIN [Concomitant]
     Active Substance: DIGOXIN
     Indication: Hypertension
     Dosage: UNK UNK, QD
     Route: 048
     Dates: end: 20220526
  7. DILTIAZEM HYDROCHLORIDE [Concomitant]
     Active Substance: DILTIAZEM HYDROCHLORIDE
     Indication: Hypertension
     Dosage: 90 MILLIGRAM, QD
     Route: 048
     Dates: end: 20220526
  8. CORDARONE [Concomitant]
     Active Substance: AMIODARONE HYDROCHLORIDE
     Indication: Hypertension
     Dosage: 100 MILLIGRAM, QD
     Route: 048
     Dates: end: 20220526
  9. LASIX [Concomitant]
     Active Substance: FUROSEMIDE
     Indication: Hypertension
     Dosage: UNK UNK, QD
     Route: 048
     Dates: end: 20220526

REACTIONS (1)
  - Respiratory failure [Fatal]

NARRATIVE: CASE EVENT DATE: 20220526
